FAERS Safety Report 8877554 (Version 4)
Quarter: 2018Q1

REPORT INFORMATION
  Report Type: Spontaneous
  Country: FR (occurrence: FR)
  Receive Date: 20121024
  Receipt Date: 20180326
  Transmission Date: 20180509
  Serious: Yes (Hospitalization, Other)
  Sender: FDA-Public Use
  Company Number: FR-PFIZER INC-2012265467

PATIENT
  Age: 83 Year
  Sex: Female

DRUGS (10)
  1. BISOPROLOL [Concomitant]
     Active Substance: BISOPROLOL
     Dosage: UNK
  2. PREVISCAN (FLUINDIONE) [Interacting]
     Active Substance: FLUINDIONE
     Indication: DYSLIPIDAEMIA
     Dosage: UNK, DAILY (0.25 DF DAILY THEN 0. 5 DF DAILY ALTERNATELY)
     Route: 065
     Dates: end: 20120906
  3. XANAX [Concomitant]
     Active Substance: ALPRAZOLAM
     Dosage: UNK
  4. AUGMENTIN [Concomitant]
     Active Substance: AMOXICILLIN\CLAVULANATE POTASSIUM
     Indication: URINARY TRACT INFECTION
     Dosage: UNK
     Dates: start: 20120821, end: 20120828
  5. PRAVASTATIN SODIUM. [Interacting]
     Active Substance: PRAVASTATIN SODIUM
     Indication: DYSLIPIDAEMIA
     Dosage: 5 OR 10 MG DAILY IN ALTERNANCE
     Route: 048
     Dates: end: 20120906
  6. NIDREL [Concomitant]
     Active Substance: NITRENDIPINE
     Dosage: UNK
     Dates: end: 20120826
  7. SINTROM [Concomitant]
     Active Substance: ACENOCOUMAROL
     Dosage: UNK
     Dates: end: 20120813
  8. CORDARONE [Suspect]
     Active Substance: AMIODARONE HYDROCHLORIDE
     Indication: ARRHYTHMIA
     Dosage: 200 MG, WEEKLY (5/7 DAYS) (EVERY)
     Route: 048
  9. PREVISCAN (FLUINDIONE) [Interacting]
     Active Substance: FLUINDIONE
     Indication: PROPHYLAXIS
     Dosage: UNK, DAILY (5 MG EVEN DAYS - 10 MG ODD DAYS)(0.25 DF EVEN DAYS THEN 0.5 DF ODD DAYS ALTERNATELY)
     Route: 048
     Dates: start: 20120813, end: 20120826
  10. MOPRAL [Concomitant]
     Active Substance: OMEPRAZOLE
     Indication: GASTRIC ULCER
     Dosage: 20 MG TWICE DAILY

REACTIONS (4)
  - Renal failure [Unknown]
  - Drug interaction [Recovered/Resolved]
  - Melaena [Recovered/Resolved]
  - Anaemia [Recovered/Resolved]

NARRATIVE: CASE EVENT DATE: 20120826
